FAERS Safety Report 5695960-5 (Version None)
Quarter: 2008Q2

REPORT INFORMATION
  Report Type: 
  Country: None (occurrence: None)
  Receive Date: 20080407
  Receipt Date: 20080331
  Transmission Date: 20081010
  Serious: Yes (Hospitalization)
  Sender: FDA-Public Use
  Company Number: AT-ASTRAZENECA-2008PK00694

PATIENT
  Age: 16869 Day
  Sex: Female
  Weight: 72 kg

DRUGS (3)
  1. NOLVADEX [Suspect]
     Indication: BREAST CANCER
     Route: 048
     Dates: start: 20040821, end: 20070904
  2. ZOMETA [Suspect]
     Indication: BREAST CANCER
     Dosage: 4 MG EVERY SIX MONTHS
     Route: 042
     Dates: start: 20040901, end: 20071003
  3. ZOLADEX [Concomitant]
     Indication: BREAST CANCER
     Route: 058
     Dates: start: 20040901, end: 20070904

REACTIONS (2)
  - ENDOMETRIAL HYPERPLASIA [None]
  - MENOMETRORRHAGIA [None]
